FAERS Safety Report 8607407-7 (Version None)
Quarter: 2012Q3

REPORT INFORMATION
  Report Type: 
  Country: None (occurrence: None)
  Receive Date: 20120821
  Receipt Date: 20120813
  Transmission Date: 20120928
  Serious: Yes (Other)
  Sender: FDA-Public Use
  Company Number: JP-GENZYME-THYM-1003364

PATIENT
  Sex: Male
  Weight: 62 kg

DRUGS (22)
  1. ACYCLOVIR [Concomitant]
     Dosage: UNK
     Route: 065
     Dates: start: 20110421, end: 20110526
  2. ACETAMINOPHEN [Concomitant]
     Indication: PREMEDICATION
     Dosage: UNK
     Route: 065
     Dates: start: 20110322, end: 20110323
  3. TACROLIMUS [Concomitant]
     Dosage: UNK
     Route: 065
     Dates: start: 20110503
  4. MELPHALAN HYDROCHLORIDE [Concomitant]
     Indication: BONE MARROW CONDITIONING REGIMEN
     Dosage: UNK
     Route: 065
     Dates: start: 20110320, end: 20110321
  5. GRANISETRON HYDROCHLORIDE [Concomitant]
     Indication: PROPHYLAXIS OF NAUSEA AND VOMITING
     Dosage: UNK
     Route: 065
     Dates: start: 20110320, end: 20110321
  6. GRANISETRON HYDROCHLORIDE [Concomitant]
  7. METHOTREXATE [Concomitant]
     Indication: PROPHYLAXIS AGAINST GRAFT VERSUS HOST DISEASE
     Dosage: UNK
     Route: 065
     Dates: start: 20110326, end: 20110331
  8. METHYLPREDNISOLONE SODIUM SUCCINATE [Concomitant]
     Indication: PREMEDICATION
     Dosage: UNK
     Route: 065
     Dates: start: 20110322, end: 20110323
  9. ACYCLOVIR [Concomitant]
     Indication: ANTIVIRAL PROPHYLAXIS
     Dosage: UNK
     Route: 065
     Dates: start: 20110324, end: 20110421
  10. MONOAMMONIUM GLYCYRRHIZINATE_GLYCINE_L-CYSTEINE [Concomitant]
     Indication: PREMEDICATION
     Dosage: UNK
     Route: 065
     Dates: start: 20110322, end: 20110527
  11. CEFAZOLIN SODIUM [Concomitant]
     Indication: ANTIBIOTIC PROPHYLAXIS
  12. TACROLIMUS [Concomitant]
     Indication: PROPHYLAXIS AGAINST GRAFT VERSUS HOST DISEASE
     Dosage: UNK
     Route: 065
     Dates: start: 20110322, end: 20110502
  13. CYTARABINE [Concomitant]
     Indication: BONE MARROW CONDITIONING REGIMEN
     Dosage: UNK
     Route: 065
     Dates: start: 20110316, end: 20110317
  14. CEFAZOLIN SODIUM [Concomitant]
     Indication: SEPSIS
     Dosage: UNK
     Route: 065
     Dates: start: 20110213, end: 20110501
  15. MICAFUNGIN SODIUM [Concomitant]
     Indication: ANTIFUNGAL PROPHYLAXIS
     Dosage: UNK
     Route: 065
     Dates: start: 20110322, end: 20110527
  16. FLUDARABINE PHOSPHATE [Concomitant]
     Indication: BONE MARROW CONDITIONING REGIMEN
     Dosage: UNK
     Route: 065
     Dates: start: 20110318, end: 20110322
  17. LEVOFLOXACIN [Concomitant]
     Indication: ANTIBIOTIC PROPHYLAXIS
     Dosage: UNK
     Route: 065
     Dates: start: 20110324
  18. THYMOGLOBULIN [Suspect]
     Dosage: 63 MG, QD
     Route: 065
     Dates: start: 20110322, end: 20110323
  19. VANCOMYCIN HCL [Concomitant]
     Indication: SEPSIS
     Dosage: UNK
     Route: 065
     Dates: start: 20110224, end: 20110318
  20. FEXOFENADINE HCL [Concomitant]
     Indication: PREMEDICATION
     Dosage: UNK
     Route: 065
     Dates: start: 20110322, end: 20110323
  21. SULFAMETHOPRIM [Concomitant]
     Indication: ANTIFUNGAL PROPHYLAXIS
     Dosage: UNK
     Route: 065
     Dates: start: 20110428
  22. VALACYCLOVIR HYDROCHLORIDE [Concomitant]
     Indication: ANTIVIRAL PROPHYLAXIS
     Dosage: UNK
     Route: 065
     Dates: start: 20110602

REACTIONS (4)
  - ACUTE GRAFT VERSUS HOST DISEASE IN SKIN [None]
  - CYTOMEGALOVIRUS TEST POSITIVE [None]
  - ACUTE MYELOID LEUKAEMIA RECURRENT [None]
  - MYELODYSPLASTIC SYNDROME [None]
